FAERS Safety Report 4742664-9 (Version None)
Quarter: 2005Q3

REPORT INFORMATION
  Report Type: 
  Country: None (occurrence: None)
  Receive Date: 20050811
  Receipt Date: 20050803
  Transmission Date: 20060218
  Serious: Yes (Hospitalization)
  Sender: FDA-Public Use
  Company Number: FR-JNJFOC-20050801767

PATIENT
  Age: 66 Year
  Sex: Male

DRUGS (11)
  1. RISPERDAL [Suspect]
     Indication: DRUG USE FOR UNKNOWN INDICATION
     Route: 048
  2. NOCTRAN [Suspect]
     Route: 048
  3. NOCTRAN [Suspect]
     Route: 048
  4. NOCTRAN [Suspect]
     Indication: DRUG USE FOR UNKNOWN INDICATION
     Route: 048
  5. CLONAZEPAM [Suspect]
     Route: 048
  6. CLONAZEPAM [Suspect]
     Indication: DRUG USE FOR UNKNOWN INDICATION
     Route: 048
  7. DEPAKENE [Concomitant]
     Route: 048
  8. SOLU-MEDROL [Concomitant]
  9. SERETIDE [Concomitant]
  10. SERETIDE [Concomitant]
  11. COVERSYL [Concomitant]

REACTIONS (4)
  - BRONCHOPNEUMOPATHY [None]
  - CARDIAC FAILURE [None]
  - CONFUSIONAL STATE [None]
  - IMPAIRED SELF-CARE [None]
